FAERS Safety Report 6375625-7 (Version None)
Quarter: 2009Q3

REPORT INFORMATION
  Report Type: 
  Country: None (occurrence: None)
  Receive Date: 20090917
  Receipt Date: 20090917
  Transmission Date: 20100115
  Serious: Yes (Death)
  Sender: FDA-Public Use
  Company Number: None

PATIENT
  Age: 38 Year
  Sex: Male
  Weight: 95.2554 kg

DRUGS (2)
  1. PRISTIQ [Suspect]
     Indication: DEPRESSION
     Dosage: 50MG ONE A DAY
     Dates: start: 20090901, end: 20090908
  2. PRISTIQ [Suspect]
     Indication: FATIGUE
     Dosage: 50MG ONE A DAY
     Dates: start: 20090901, end: 20090908

REACTIONS (1)
  - COMPLETED SUICIDE [None]
